FAERS Safety Report 9147434 (Version 1)
Quarter: 2013Q1

REPORT INFORMATION
  Report Type: Spontaneous
  Country: US (occurrence: US)
  Receive Date: 20130307
  Receipt Date: 20130307
  Transmission Date: 20140127
  Serious: Yes (Life-Threatening, Hospitalization, Other)
  Sender: FDA-Public Use
  Company Number: US-009507513-1303USA001887

PATIENT
  Age: 46 Year
  Sex: Female

DRUGS (13)
  1. SINGULAIR [Suspect]
  2. CYMBALTA [Concomitant]
     Indication: PRODUCT USED FOR UNKNOWN INDICATION
  3. WELLBUTRIN [Concomitant]
  4. MICARDIS [Concomitant]
  5. SPIRIVA [Concomitant]
  6. LYRICA [Concomitant]
  7. METFORMIN HYDROCHLORIDE [Concomitant]
  8. LORATADINE [Concomitant]
  9. AMITRIPTYLINE HYDROCHLORIDE [Concomitant]
  10. ACTOS [Concomitant]
  11. PREVACID [Concomitant]
  12. IBUPROFEN [Concomitant]
  13. KADIAN [Concomitant]

REACTIONS (8)
  - Pneumonia [Unknown]
  - Respiratory failure [Unknown]
  - Post procedural pneumonia [Unknown]
  - Hypotension [Unknown]
  - Hypercapnia [Unknown]
  - Depressed level of consciousness [Unknown]
  - Aspiration [Unknown]
  - Agitation [Unknown]
